FAERS Safety Report 11381444 (Version 2)
Quarter: 2015Q3

REPORT INFORMATION
  Report Type: Spontaneous
  Country: FR (occurrence: FR)
  Receive Date: 20150814
  Receipt Date: 20150921
  Transmission Date: 20151125
  Serious: Yes (Hospitalization)
  Sender: FDA-Public Use
  Company Number: FR-TEVA-584934ISR

PATIENT
  Age: 81 Year
  Sex: Male

DRUGS (15)
  1. CORTANCYL [Concomitant]
     Active Substance: PREDNISONE
     Dosage: 20 MILLIGRAM DAILY; IN THE MORNING
  2. PREVISCAN [Concomitant]
     Active Substance: FLUINDIONE
     Dosage: 20 MILLIGRAM DAILY; AT NIGHT
  3. AMLOR [Suspect]
     Active Substance: AMLODIPINE BESYLATE
     Indication: MYOCARDIAL ISCHAEMIA
     Dosage: 5 MILLIGRAM DAILY; IN THE MORNING
     Route: 048
  4. STALEVO 200 MG/50 MG/200 MG [Concomitant]
     Dosage: 4 DOSAGE FORMS DAILY; LEVODOPA 200 MG/ CARBIDOPA ANHYDRE 50 MG/ ENTACAPONE 200 MG
  5. SINEMET LP 200 MG/50 MG [Suspect]
     Active Substance: CARBIDOPA\LEVODOPA
     Indication: PARKINSON^S DISEASE
     Dosage: 1 DOSAGE FORMS DAILY; LEVODOPA 200 MG/  CARBIDOPA 50 MG, AT NIGHT
     Route: 048
  6. AZILECT [Suspect]
     Active Substance: RASAGILINE MESYLATE
     Indication: PARKINSON^S DISEASE
     Dosage: 1 MILLIGRAM DAILY; IN THE MORNING
     Route: 048
  7. LEPONEX [Suspect]
     Active Substance: CLOZAPINE
     Indication: HALLUCINATION
     Dosage: 25 MILLIGRAM DAILY; AT NIGHT
     Route: 048
     Dates: end: 20150615
  8. ALPRAZOLAM. [Concomitant]
     Active Substance: ALPRAZOLAM
     Dosage: .5 MILLIGRAM DAILY; AT NIGHT
  9. DAFALGAN [Concomitant]
     Active Substance: ACETAMINOPHEN
     Dosage: 6 DOSAGE FORMS DAILY;
  10. FORLAX [Concomitant]
     Active Substance: POLYETHYLENE GLYCOL 4000
     Dosage: 1 DOSAGE FORMS DAILY; IN THE MORNING
  11. PARIET [Suspect]
     Active Substance: RABEPRAZOLE SODIUM
     Indication: PROPHYLAXIS AGAINST GASTROINTESTINAL ULCER
     Dosage: 20 MILLIGRAM DAILY; IN THE MORNING
     Route: 048
     Dates: end: 20150615
  12. CORDARONE [Concomitant]
     Active Substance: AMIODARONE HYDROCHLORIDE
     Dosage: 200 MG PER DAY IN THE MORNING, 5 DAY ON 7 DAY
  13. CARDENSIEL [Concomitant]
     Active Substance: BISOPROLOL FUMARATE
     Dosage: 1.25 MILLIGRAM DAILY; IN THE MORNING
  14. TAHOR [Concomitant]
     Active Substance: ATORVASTATIN CALCIUM
     Dosage: 40 MILLIGRAM DAILY; AT NIGHT
  15. MODOPAR 50 MG/ 12.5 MG [Suspect]
     Active Substance: BENSERAZIDE HYDROCHLORIDE\LEVODOPA
     Dosage: .5 DOSAGE FORMS DAILY; LEVODOPA 50 MG/ BENSERAZIDE 12.5 MG, IN THE MORNING
     Route: 048

REACTIONS (1)
  - Agranulocytosis [Not Recovered/Not Resolved]

NARRATIVE: CASE EVENT DATE: 20150615
